FAERS Safety Report 6998017-6 (Version None)
Quarter: 2010Q3

REPORT INFORMATION
  Report Type: 
  Country: None (occurrence: None)
  Receive Date: 20100920
  Receipt Date: 20100723
  Transmission Date: 20110219
  Serious: No
  Sender: FDA-Public Use
  Company Number: US-ASTRAZENECA-2009UW17573

PATIENT
  Age: 41 Year
  Sex: Female
  Weight: 104.3 kg

DRUGS (9)
  1. SEROQUEL [Suspect]
     Indication: SCHIZOPHRENIA
     Route: 048
     Dates: start: 20060101
  2. SEROQUEL [Suspect]
     Dosage: 200 MG  TO 400 MG DISPENSED
     Route: 048
     Dates: start: 20080605
  3. AMOXICILLIN [Concomitant]
     Dates: start: 20080430
  4. HYDROCODONE BITARTRATE AND ACETAMINOPHEN [Concomitant]
     Dosage: 5-500
     Dates: start: 20080430
  5. CLONAZEPAM [Concomitant]
     Dates: start: 20080605
  6. LEXAPRO [Concomitant]
     Dates: start: 20080605
  7. HYDROXYZINE PAM [Concomitant]
     Dates: start: 20080703
  8. SIMVASTATIN [Concomitant]
     Dates: start: 20080910
  9. TRICOR [Concomitant]
     Dates: start: 20080910

REACTIONS (2)
  - OBESITY [None]
  - TYPE 2 DIABETES MELLITUS [None]
